FAERS Safety Report 7711015-X (Version None)
Quarter: 2011Q3

REPORT INFORMATION
  Report Type: 
  Country: None (occurrence: None)
  Receive Date: 20110825
  Receipt Date: 20110812
  Transmission Date: 20111222
  Serious: Yes (Hospitalization)
  Sender: FDA-Public Use
  Company Number: US-MYLANLABS-2011S1016944

PATIENT
  Age: 11 Year
  Sex: Male

DRUGS (2)
  1. LEVETIRACETAM [Suspect]
     Indication: GRAND MAL CONVULSION
     Dosage: 25 MG/KG/DAY
     Route: 065
  2. LEVETIRACETAM [Suspect]
     Dosage: 40 MG/KG/DAY
     Route: 065

REACTIONS (1)
  - MYOCLONIC EPILEPSY [None]
